FAERS Safety Report 17292340 (Version 1)
Quarter: 2020Q1

REPORT INFORMATION
  Report Type: Spontaneous
  Country: FR (occurrence: FR)
  Receive Date: 20200121
  Receipt Date: 20200121
  Transmission Date: 20200409
  Serious: Yes (Hospitalization)
  Sender: FDA-Public Use
  Company Number: FR-BAYER-2019-228626

PATIENT
  Age: 42 Year
  Sex: Female
  Weight: 63 kg

DRUGS (3)
  1. LEELOO [Suspect]
     Active Substance: ETHINYL ESTRADIOL\LEVONORGESTREL
     Indication: HORMONAL CONTRACEPTION
     Dosage: 1 DF, QD
     Route: 048
     Dates: start: 20190203, end: 20190222
  2. JASMINE [Suspect]
     Active Substance: DROSPIRENONE\ETHINYL ESTRADIOL
     Indication: HORMONAL CONTRACEPTION
     Dosage: 1 DF, QD
     Route: 048
     Dates: end: 201809
  3. ANTIGONE [Suspect]
     Active Substance: DESOGESTREL
     Indication: HORMONAL CONTRACEPTION
     Dosage: 1 DF, QD
     Route: 048
     Dates: start: 201809, end: 20190203

REACTIONS (3)
  - Headache [Recovered/Resolved]
  - Transverse sinus thrombosis [Recovering/Resolving]
  - Cerebral venous thrombosis [Recovering/Resolving]

NARRATIVE: CASE EVENT DATE: 20190203
